FAERS Safety Report 13713604 (Version 1)
Quarter: 2017Q3

REPORT INFORMATION
  Report Type: Spontaneous
  Country: US (occurrence: US)
  Receive Date: 20170704
  Receipt Date: 20170704
  Transmission Date: 20171127
  Serious: Yes (Other)
  Sender: FDA-Public Use
  Company Number: US-CIPLA LTD.-2017US11105

PATIENT

DRUGS (11)
  1. DIPHENHYDRAMINE. [Suspect]
     Active Substance: DIPHENHYDRAMINE
     Indication: NEURALGIA
     Dosage: 10 MG, EVERY BEDTIME (0.1 MG/KG/DOSE) FOR 3 DOSES
     Route: 048
  2. VINCRISTINE [Suspect]
     Active Substance: VINCRISTINE
     Indication: ACUTE LYMPHOCYTIC LEUKAEMIA
     Dosage: 0.75 MG/M2, BODY SURFACE AREA MONTHLY
     Route: 065
  3. LORAZEPAM. [Suspect]
     Active Substance: LORAZEPAM
     Indication: NEURALGIA
     Dosage: 0.4 MG, EVERY BEDTIME (0.05MG/KG/DOSE) FOR TWO DOSES
     Route: 048
  4. MELATONIN [Suspect]
     Active Substance: MELATONIN
     Indication: NEURALGIA
     Dosage: 2.5 MG, EVERY BEDTIME (0.25 MG/KG/DOSE) FOR 14 DAYS
     Route: 048
  5. AMITRIPTYLINE [Suspect]
     Active Substance: AMITRIPTYLINE
     Dosage: 2.5 MG, (0.25 MG/KG/DAY)
     Route: 048
  6. OLANZAPINE. [Suspect]
     Active Substance: OLANZAPINE
     Indication: INSOMNIA
     Dosage: 0.5 MG, EVERY BEDTIME (0.05 MG/KG/DOSE)
     Route: 048
  7. OLANZAPINE. [Suspect]
     Active Substance: OLANZAPINE
     Dosage: 2.5 MG, EVERY BEDTIME (0.25 MG/KG/DOSE)
     Route: 048
  8. AMITRIPTYLINE [Suspect]
     Active Substance: AMITRIPTYLINE
     Indication: NEURALGIA
     Dosage: 2.5 MG, EVERY BEDTIME (0.25 MG/KG/DAY) FOR 20 DAYS
     Route: 048
  9. ACETAMINOPHEN. [Suspect]
     Active Substance: ACETAMINOPHEN
     Indication: NEURALGIA
     Dosage: UNK
     Route: 065
  10. AMITRIPTYLINE [Suspect]
     Active Substance: AMITRIPTYLINE
     Dosage: 5 MG, EVERY BEDTIME (0.5 MG/KG/DOSE)
     Route: 048
  11. GABAPENTIN. [Suspect]
     Active Substance: GABAPENTIN
     Indication: NEURALGIA
     Dosage: 45 MG/KG/DAY
     Route: 065

REACTIONS (6)
  - Paradoxical drug reaction [Unknown]
  - Neuralgia [Recovered/Resolved]
  - Insomnia [Unknown]
  - Fatigue [Unknown]
  - Gross motor delay [Unknown]
  - Drug ineffective [Unknown]
